FAERS Safety Report 7832293-2 (Version None)
Quarter: 2011Q4

REPORT INFORMATION
  Report Type: 
  Country: None (occurrence: None)
  Receive Date: 20111022
  Receipt Date: 20111016
  Transmission Date: 20120403
  Serious: Yes (Other)
  Sender: FDA-Public Use
  Company Number: US-BAYER-2011-100706

PATIENT
  Sex: Female

DRUGS (1)
  1. PHILLIPS' MILK OF MAGNESIA LIQUID ORIGINAL [Suspect]
     Route: 048

REACTIONS (1)
  - RENAL FAILURE [None]
